FAERS Safety Report 14158276 (Version 2)
Quarter: 2017Q4

REPORT INFORMATION
  Report Type: Report from Study
  Country: KR (occurrence: KR)
  Receive Date: 20171106
  Receipt Date: 20171108
  Transmission Date: 20180321
  Serious: Yes (Life-Threatening)
  Sender: FDA-Public Use
  Company Number: KR-ROCHE-2014418

PATIENT
  Age: 78 Year
  Sex: Female
  Weight: 48.7 kg

DRUGS (14)
  1. ULTIVA [Concomitant]
     Active Substance: REMIFENTANIL HYDROCHLORIDE
     Route: 065
     Dates: start: 20171026
  2. ESMERON [Concomitant]
     Active Substance: ROCURONIUM BROMIDE
     Route: 065
     Dates: start: 20171026, end: 20171026
  3. BENDAMUSTINE [Suspect]
     Active Substance: BENDAMUSTINE
     Indication: B-CELL LYMPHOMA
     Dosage: DATE OF LAST DOSE PRIOR TO SAE: 29/SEP/2017?TEMPORARILY INTERRUPTED ON: 24/OCT/2017
     Route: 042
     Dates: start: 20170928
  4. SYNACTHENE [Concomitant]
     Route: 065
     Dates: start: 20171024, end: 20171024
  5. MIDAZOLAM [Concomitant]
     Active Substance: MIDAZOLAM HYDROCHLORIDE
     Route: 065
     Dates: start: 20171026, end: 20171026
  6. ACETAMINOPHEN. [Concomitant]
     Active Substance: ACETAMINOPHEN
     Route: 065
     Dates: start: 20171020, end: 20171023
  7. SODIUM BICARBONATE. [Concomitant]
     Active Substance: SODIUM BICARBONATE
     Route: 065
     Dates: start: 20171025, end: 20171027
  8. ETOMIDATE LIPURO [Concomitant]
     Active Substance: ETOMIDATE
     Route: 065
     Dates: start: 20171026, end: 20171026
  9. ALBUMIN [Concomitant]
     Active Substance: ALBUMIN HUMAN
     Route: 065
     Dates: start: 20171026, end: 20171026
  10. NACL 3% [Concomitant]
     Route: 065
     Dates: start: 20171024, end: 20171026
  11. PANTOLINE [Concomitant]
     Active Substance: PANTOPRAZOLE SODIUM
     Route: 065
     Dates: start: 20171024
  12. BETMIGA [Concomitant]
     Active Substance: MIRABEGRON
     Dosage: PROLONG RELEASE?1T
     Route: 065
     Dates: start: 201603
  13. RITUXIMAB. [Suspect]
     Active Substance: RITUXIMAB
     Indication: B-CELL LYMPHOMA
     Route: 042
     Dates: start: 20170928
  14. PRECEDEX [Concomitant]
     Active Substance: DEXMEDETOMIDINE HYDROCHLORIDE
     Route: 065
     Dates: start: 20171026

REACTIONS (1)
  - Pneumonia [Not Recovered/Not Resolved]

NARRATIVE: CASE EVENT DATE: 20171020
